FAERS Safety Report 16317919 (Version 13)
Quarter: 2022Q2

REPORT INFORMATION
  Report Type: Spontaneous
  Country: JP (occurrence: JP)
  Receive Date: 20190516
  Receipt Date: 20220525
  Transmission Date: 20220720
  Serious: Yes (Death, Hospitalization, Other)
  Sender: FDA-Public Use
  Company Number: JP-BRISTOL-MYERS SQUIBB COMPANY-BMS-2019-005098

PATIENT
  Age: 64 Year
  Sex: Male
  Weight: 59.2 kg

DRUGS (28)
  1. OPDIVO [Suspect]
     Active Substance: NIVOLUMAB
     Indication: Non-small cell lung cancer recurrent
     Dosage: 180 MILLIGRAM, Q2WK
     Route: 041
     Dates: start: 20180618
  2. OPDIVO [Suspect]
     Active Substance: NIVOLUMAB
     Dosage: 240 MILLIGRAM, Q2WK
     Route: 041
     Dates: start: 20181105, end: 20181105
  3. ZOSYN [Suspect]
     Active Substance: PIPERACILLIN SODIUM\TAZOBACTAM SODIUM
     Indication: Product used for unknown indication
     Dosage: 4.5 G, Q8H
     Route: 042
     Dates: start: 20190216
  4. ACETAMINOPHEN [Suspect]
     Active Substance: ACETAMINOPHEN
     Indication: Product used for unknown indication
     Dosage: UNK
     Route: 065
  5. PREDONINE [Suspect]
     Active Substance: PREDNISOLONE
     Indication: Immunosuppression
     Route: 065
     Dates: start: 20190306
  6. PREDONINE [Suspect]
     Active Substance: PREDNISOLONE
     Route: 065
     Dates: start: 20190425
  7. PREDONINE [Suspect]
     Active Substance: PREDNISOLONE
     Route: 065
  8. CELLCEPT [Suspect]
     Active Substance: MYCOPHENOLATE MOFETIL
     Indication: Product used for unknown indication
     Dates: start: 20190328
  9. CELLCEPT [Suspect]
     Active Substance: MYCOPHENOLATE MOFETIL
     Route: 065
     Dates: start: 20190606, end: 20190609
  10. TACROLIMUS [Suspect]
     Active Substance: TACROLIMUS
     Indication: Product used for unknown indication
     Route: 065
     Dates: start: 20190510
  11. JANUVIA [Concomitant]
     Active Substance: SITAGLIPTIN PHOSPHATE
     Indication: Type 2 diabetes mellitus
     Dosage: 50 MG, EVERYDAY
     Route: 048
  12. JANUVIA [Concomitant]
     Active Substance: SITAGLIPTIN PHOSPHATE
     Dosage: 50 MILLIGRAM, QD
     Route: 048
  13. BILASTINE [Concomitant]
     Active Substance: BILASTINE
     Dosage: 1 DF, EVERYDAY
     Route: 065
  14. BILASTINE [Concomitant]
     Active Substance: BILASTINE
     Indication: Product used for unknown indication
     Dosage: 1 DOSAGE FORM, QD
     Route: 065
  15. MAGNESIUM OXIDE [Concomitant]
     Active Substance: MAGNESIUM OXIDE
     Dosage: UNK
     Route: 065
  16. MAGNESIUM OXIDE [Concomitant]
     Active Substance: MAGNESIUM OXIDE
     Indication: Product used for unknown indication
     Dosage: UNK
     Route: 065
  17. ALLOPURINOL [Concomitant]
     Active Substance: ALLOPURINOL
     Dosage: 1 DF, EVERYDAY
     Route: 065
  18. ALLOPURINOL [Concomitant]
     Active Substance: ALLOPURINOL
     Indication: Product used for unknown indication
     Dosage: 1 DOSAGE FORM, QD
     Route: 065
  19. MAGNESIUM OXIDE [Concomitant]
     Active Substance: MAGNESIUM OXIDE
     Dosage: UNK
     Route: 048
  20. MAGNESIUM OXIDE [Concomitant]
     Active Substance: MAGNESIUM OXIDE
     Indication: Product used for unknown indication
     Route: 048
  21. OXYCODONE [Concomitant]
     Active Substance: OXYCODONE
     Dosage: UNK
     Route: 065
  22. OXYCODONE [Concomitant]
     Active Substance: OXYCODONE
     Indication: Product used for unknown indication
     Route: 065
  23. ALBUMIN HUMAN [Concomitant]
     Active Substance: ALBUMIN HUMAN
     Dosage: 30 UNIT
     Route: 065
     Dates: start: 20190505, end: 20191004
  24. ALBUMIN HUMAN [Concomitant]
     Active Substance: ALBUMIN HUMAN
     Indication: Product used for unknown indication
  25. PLATELETS [Concomitant]
     Active Substance: HUMAN PLATELET, ALLOGENIC
     Dosage: 120 UNIT
     Route: 065
     Dates: start: 20190505, end: 20191004
  26. PLATELETS [Concomitant]
     Active Substance: HUMAN PLATELET, ALLOGENIC
     Indication: Product used for unknown indication
  27. HUMAN RED BLOOD CELL [Concomitant]
     Active Substance: HUMAN RED BLOOD CELL
     Dosage: 4 UNIT
     Route: 065
     Dates: start: 20190505, end: 20191004
  28. HUMAN RED BLOOD CELL [Concomitant]
     Active Substance: HUMAN RED BLOOD CELL
     Indication: Product used for unknown indication

REACTIONS (12)
  - Cytomegalovirus viraemia [Recovered/Resolved]
  - Hepatic failure [Fatal]
  - Cholangitis sclerosing [Fatal]
  - Type 1 diabetes mellitus [Recovering/Resolving]
  - Diabetic ketoacidosis [Recovering/Resolving]
  - Immune-mediated hepatitis [Unknown]
  - Biliary obstruction [Unknown]
  - Bacteraemia [Recovered/Resolved]
  - Fungal infection [Recovering/Resolving]
  - Constipation [Not Recovered/Not Resolved]
  - Rhinitis allergic [Recovering/Resolving]
  - Drug eruption [Recovering/Resolving]

NARRATIVE: CASE EVENT DATE: 20181105
